FAERS Safety Report 7076170-6 (Version None)
Quarter: 2010Q4

REPORT INFORMATION
  Report Type: 
  Country: None (occurrence: None)
  Receive Date: 20101101
  Receipt Date: 20101020
  Transmission Date: 20110411
  Serious: Yes (Hospitalization)
  Sender: FDA-Public Use
  Company Number: US-BAYER-201022916NA

PATIENT
  Age: 31 Year
  Sex: Female
  Weight: 59 kg

DRUGS (2)
  1. MIRENA [Suspect]
     Indication: CONTRACEPTION
     Dosage: FREQUENCY CONTINUOUS
     Route: 015
     Dates: start: 20071217, end: 20100505
  2. PRENATAL VITAMINS [Concomitant]

REACTIONS (7)
  - COSTOVERTEBRAL ANGLE TENDERNESS [None]
  - DYSURIA [None]
  - FLANK PAIN [None]
  - GENITOURINARY CHLAMYDIA INFECTION [None]
  - PELVIC INFLAMMATORY DISEASE [None]
  - PYREXIA [None]
  - VAGINAL DISCHARGE [None]
